FAERS Safety Report 10235056 (Version 3)
Quarter: 2014Q4

REPORT INFORMATION
  Report Type: Spontaneous
  Country: US (occurrence: None)
  Receive Date: 20140611
  Receipt Date: 20141024
  Transmission Date: 20150528
  Serious: Yes (Life-Threatening)
  Sender: FDA-Public Use
  Company Number: 1713747-2014-99985

PATIENT
  Age: 63 Year
  Sex: Male
  Weight: 81.4 kg

DRUGS (18)
  1. RESTORIL [Concomitant]
     Active Substance: TEMAZEPAM
  2. DELFLEX WITH DEXTROSE 2.5% LOW MAGNESIUM LOW CALCIUM [Suspect]
     Active Substance: CALCIUM CHLORIDE\DEXTROSE MONOHYDRATE\MAGNESIUM CHLORIDE\SODIUM CHLORIDE\SODIUM LACTATE
     Indication: CHRONIC KIDNEY DISEASE
     Dosage: PERITONEAL DIALYSIS
     Dates: start: 20110128
  3. PRILOSEC [Concomitant]
     Active Substance: OMEPRAZOLE MAGNESIUM
  4. LIBERTY CYCLER SET-DUAL PATIENT CONNECT [Concomitant]
  5. CEFTIN HOME KIT [Concomitant]
  6. RENAL SOFTGEL [Concomitant]
  7. CEFTIN/VANCOMYCIN HOME KIT [Concomitant]
  8. RENVELA [Concomitant]
     Active Substance: SEVELAMER CARBONATE
  9. LIBERTY CYCLER [Concomitant]
     Active Substance: DEVICE
  10. CELEXA [Concomitant]
     Active Substance: CITALOPRAM HYDROBROMIDE
  11. TESSALON PEARLS [Concomitant]
  12. ZEMPLAR [Concomitant]
     Active Substance: PARICALCITOL
  13. CLONODINE [Concomitant]
  14. DIOVAN [Concomitant]
     Active Substance: VALSARTAN
  15. SIMVISTATIN [Concomitant]
     Active Substance: SIMVASTATIN
  16. LEVEMIR [Concomitant]
     Active Substance: INSULIN DETEMIR
  17. ASPIRIN. [Concomitant]
     Active Substance: ASPIRIN
  18. HOME EPOGEN 7000 UNITS [Concomitant]

REACTIONS (1)
  - Peritonitis [None]

NARRATIVE: CASE EVENT DATE: 20110128
